FAERS Safety Report 16834120 (Version 4)
Quarter: 2020Q1

REPORT INFORMATION
  Report Type: Spontaneous
  Country: US (occurrence: US)
  Receive Date: 20190920
  Receipt Date: 20200205
  Transmission Date: 20200409
  Serious: No
  Sender: FDA-Public Use
  Company Number: US-PFIZER INC-2019406604

PATIENT
  Age: 51 Year
  Sex: Female

DRUGS (1)
  1. XELJANZ [Suspect]
     Active Substance: TOFACITINIB CITRATE
     Indication: RHEUMATOID ARTHRITIS
     Dosage: 10 MG, DAILY (2 TABLET 5MG AT SAME TIME/ 1 TABLET BY MOUTH TWICE DAILY)
     Route: 048
     Dates: start: 20181212, end: 20191204

REACTIONS (4)
  - Off label use [Unknown]
  - Oral herpes [Unknown]
  - Erythema [Unknown]
  - Heart rate increased [Unknown]

NARRATIVE: CASE EVENT DATE: 20181212
